FAERS Safety Report 8780675 (Version 1)
Quarter: 2012Q4

REPORT INFORMATION
  Report Type: 
  Country: IE (occurrence: IE)
  Receive Date: 20120913
  Receipt Date: 20120913
  Transmission Date: 20130627
  Serious: Yes (Death)
  Sender: FDA-Public Use
  Company Number: PHHY2012IE077288

PATIENT

DRUGS (10)
  1. CICLOSPORIN [Suspect]
     Indication: GRAFT VERSUS HOST DISEASE
  2. CYCLOPHOSPHAMIDE [Concomitant]
  3. FLUDARABINE [Concomitant]
  4. ALEMTUZUMAB [Concomitant]
  5. URSODEOXYCHOLIC ACID [Concomitant]
  6. CO-TRIMOXAZOLE [Concomitant]
  7. ACICLOVIR [Concomitant]
  8. VORICONAZOLE [Concomitant]
  9. AMPHOTERICIN B LIPID COMPLEX [Concomitant]
  10. ANTIBIOTICS [Concomitant]

REACTIONS (1)
  - Bacterial sepsis [Fatal]
